FAERS Safety Report 13781695 (Version 1)
Quarter: 2017Q3

REPORT INFORMATION
  Report Type: Spontaneous
  Country: EG (occurrence: EG)
  Receive Date: 20170724
  Receipt Date: 20170724
  Transmission Date: 20171127
  Serious: Yes (Hospitalization)
  Sender: FDA-Public Use
  Company Number: EG-PFIZER INC-3128924

PATIENT
  Age: 17 Year
  Sex: Female
  Weight: 40 kg

DRUGS (5)
  1. FOLIC ACID. [Concomitant]
     Active Substance: FOLIC ACID
     Indication: MARROW HYPERPLASIA
     Dosage: 5 MG, FREQ: 4 DAY; INTERVAL: 1
     Route: 048
     Dates: start: 19990401
  2. DEFEROXAMINE MESILATE [Suspect]
     Active Substance: DEFEROXAMINE MESYLATE
     Indication: IRON OVERLOAD
     Dosage: 50 MG/KG, 5 DAYSA WEEK; FREQ: 4 DAY;INTERVAL: 1
     Route: 058
     Dates: start: 20150809, end: 20151110
  3. DEFEROXAMINE MESILATE [Suspect]
     Active Substance: DEFEROXAMINE MESYLATE
     Indication: SICKLE CELL ANAEMIA
  4. BENZATHINE BENZYLPENICILLIN [Concomitant]
     Active Substance: PENICILLIN G BENZATHINE
     Indication: SPLENECTOMY
  5. BENZATHINE BENZYLPENICILLIN [Concomitant]
     Active Substance: PENICILLIN G BENZATHINE
     Indication: POSTOPERATIVE CARE
     Dosage: 1.200.000 IU,QMT
     Route: 030
     Dates: start: 20050101

REACTIONS (2)
  - Sickle cell anaemia with crisis [Recovered/Resolved with Sequelae]
  - Arthritis [Not Recovered/Not Resolved]

NARRATIVE: CASE EVENT DATE: 20151113
